FAERS Safety Report 10175816 (Version 1)
Quarter: 2014Q2

REPORT INFORMATION
  Report Type: Spontaneous
  Country: BR (occurrence: BR)
  Receive Date: 20140516
  Receipt Date: 20140516
  Transmission Date: 20141212
  Serious: Yes (Hospitalization)
  Sender: FDA-Public Use
  Company Number: BR-ASTRAZENECA-2014SE32866

PATIENT
  Age: 77 Year
  Sex: Male
  Weight: 66 kg

DRUGS (14)
  1. BRILINTA [Suspect]
     Indication: ISCHAEMIC HEART DISEASE PROPHYLAXIS
     Route: 048
     Dates: start: 201309
  2. ASPIRIN [Concomitant]
     Route: 048
     Dates: start: 201309
  3. LASIX [Concomitant]
     Route: 048
     Dates: start: 201309
  4. ALDACTONE [Concomitant]
     Route: 048
     Dates: start: 201309
  5. ATORVASTATIN [Concomitant]
     Route: 048
     Dates: start: 201309
  6. SYNTHROID [Concomitant]
     Route: 048
     Dates: start: 201309
  7. CONCOR [Concomitant]
     Route: 048
     Dates: start: 2013
  8. VASTAREL [Concomitant]
     Route: 048
     Dates: start: 201309
  9. DIAMICRON [Concomitant]
     Route: 048
     Dates: start: 201309
  10. DIAMICRON [Concomitant]
     Route: 048
     Dates: start: 201309
  11. TRAYENTA [Concomitant]
     Route: 048
     Dates: start: 201309
  12. FLUOXETINE [Concomitant]
     Indication: DEPRESSION
     Route: 048
     Dates: start: 201309
  13. ALPRAZOLAM [Concomitant]
     Indication: SLEEP DISORDER
     Route: 048
     Dates: start: 201309
  14. COMBIRON [Concomitant]
     Indication: ANAEMIA
     Route: 048
     Dates: start: 201308

REACTIONS (3)
  - Coronary artery occlusion [Recovered/Resolved]
  - Dizziness [Recovering/Resolving]
  - Weight decreased [Recovered/Resolved]
